FAERS Safety Report 10073568 (Version 2)
Quarter: 2014Q2

REPORT INFORMATION
  Report Type: Spontaneous
  Country: GB (occurrence: GB)
  Receive Date: 20140411
  Receipt Date: 20140617
  Transmission Date: 20141212
  Serious: Yes (Other)
  Sender: FDA-Public Use
  Company Number: GB-WATSON-2014-06985

PATIENT
  Age: 41 Year
  Sex: Female

DRUGS (3)
  1. TRIMETHOPRIM ALMUS [Suspect]
     Indication: URINARY TRACT INFECTION
     Dosage: 200 MG, BID
     Route: 048
     Dates: start: 20140227, end: 20140305
  2. TRIMETHOPRIM ALMUS [Suspect]
     Indication: HAEMATURIA
  3. GLUCOSAMINE [Concomitant]
     Indication: PRODUCT USED FOR UNKNOWN INDICATION
     Dosage: UNK
     Route: 065

REACTIONS (8)
  - Anaphylactic reaction [Recovered/Resolved]
  - Swelling [Recovered/Resolved]
  - Lip swelling [Recovered/Resolved]
  - Eye pain [Recovered/Resolved]
  - Rash [Recovered/Resolved]
  - Rash [Recovered/Resolved]
  - Pain in extremity [Recovered/Resolved]
  - Corneal reflex decreased [Recovered/Resolved]
